FAERS Safety Report 22130602 (Version 2)
Quarter: 2025Q3

REPORT INFORMATION
  Report Type: Report from Study
  Country: CA (occurrence: CA)
  Receive Date: 20230323
  Receipt Date: 20250929
  Transmission Date: 20251020
  Serious: Yes (Hospitalization)
  Sender: TAKEDA
  Company Number: CA-TAKEDA-2023TUS028218

PATIENT
  Age: 12 Year
  Sex: Male

DRUGS (8)
  1. VEDOLIZUMAB [Suspect]
     Active Substance: VEDOLIZUMAB
     Indication: Colitis ulcerative
  2. VEDOLIZUMAB [Suspect]
     Active Substance: VEDOLIZUMAB
  3. PENTASA [Concomitant]
     Active Substance: MESALAMINE
     Dosage: 1000 MILLIGRAM, BID
     Dates: start: 201207, end: 2019
  4. PENTASA [Concomitant]
     Active Substance: MESALAMINE
  5. TACROLIMUS [Concomitant]
     Active Substance: TACROLIMUS
  6. LANSOPRAZOLE [Concomitant]
     Active Substance: LANSOPRAZOLE
  7. URSODIOL [Concomitant]
     Active Substance: URSODIOL
  8. PREDNISONE [Concomitant]
     Active Substance: PREDNISONE

REACTIONS (3)
  - Infection [Unknown]
  - Cough [Unknown]
  - Pyrexia [Unknown]
